FAERS Safety Report 24554129 (Version 2)
Quarter: 2024Q4

REPORT INFORMATION
  Report Type: Report from Study
  Country: GB (occurrence: GB)
  Receive Date: 20241028
  Receipt Date: 20241104
  Transmission Date: 20250115
  Serious: Yes (Other)
  Sender: SANDOZ
  Company Number: GB-SANDOZ-SDZ2024GB079892

PATIENT
  Sex: Female

DRUGS (1)
  1. OMNITROPE [Suspect]
     Active Substance: SOMATROPIN
     Indication: Hyperpituitarism
     Dosage: 0.85 MG, ON
     Route: 058
     Dates: start: 20240906

REACTIONS (4)
  - Brain oedema [Unknown]
  - Retinal oedema [Unknown]
  - Product prescribing error [Unknown]
  - Product use in unapproved indication [Unknown]
